FAERS Safety Report 7892270-2 (Version None)
Quarter: 2011Q4

REPORT INFORMATION
  Report Type: 
  Country: None (occurrence: None)
  Receive Date: 20111104
  Receipt Date: 20111026
  Transmission Date: 20120403
  Serious: No
  Sender: FDA-Public Use
  Company Number: US-BIOGENIDEC-2011BI034203

PATIENT
  Sex: Female

DRUGS (1)
  1. TYSABRI [Suspect]
     Indication: MULTIPLE SCLEROSIS
     Route: 042
     Dates: start: 20110816, end: 20110816

REACTIONS (8)
  - NAUSEA [None]
  - FATIGUE [None]
  - MALAISE [None]
  - BACK PAIN [None]
  - HEADACHE [None]
  - MUSCULOSKELETAL CHEST PAIN [None]
  - ARTHRALGIA [None]
  - VISUAL IMPAIRMENT [None]
